FAERS Safety Report 19245363 (Version 1)
Quarter: 2021Q2

REPORT INFORMATION
  Report Type: Spontaneous
  Country: IT (occurrence: IT)
  Receive Date: 20210512
  Receipt Date: 20210512
  Transmission Date: 20210717
  Serious: Yes (Other)
  Sender: FDA-Public Use
  Company Number: IT-AUROBINDO-AUR-APL-2021-019200

PATIENT
  Age: 38 Year
  Sex: Female

DRUGS (3)
  1. IMODIUM [Suspect]
     Active Substance: LOPERAMIDE HYDROCHLORIDE
     Indication: DIARRHOEA
     Dosage: UNK
     Route: 065
     Dates: start: 20210317
  2. LIXIDOL [Suspect]
     Active Substance: KETOROLAC TROMETHAMINE
     Indication: DYSMENORRHOEA
     Dosage: UNK
     Route: 065
     Dates: start: 20210317
  3. PARACETAMOL [Suspect]
     Active Substance: ACETAMINOPHEN
     Indication: ABDOMINAL PAIN UPPER
     Dosage: 1 DOSAGE FORM TOTAL
     Route: 048
     Dates: start: 20210317, end: 20210317

REACTIONS (3)
  - Erythema [Recovering/Resolving]
  - Rash [Recovering/Resolving]
  - Angioedema [Recovering/Resolving]

NARRATIVE: CASE EVENT DATE: 20210317
